FAERS Safety Report 13877087 (Version 2)
Quarter: 2017Q3

REPORT INFORMATION
  Report Type: Spontaneous
  Country: US (occurrence: US)
  Receive Date: 20170817
  Receipt Date: 20170818
  Transmission Date: 20171127
  Serious: Yes (Life-Threatening, Other)
  Sender: FDA-Public Use
  Company Number: US-DRREDDYS-USA/USA/17/0092453

PATIENT
  Age: 30 Year
  Sex: Male

DRUGS (1)
  1. AMLODIPINE BESYLATE. [Suspect]
     Active Substance: AMLODIPINE BESYLATE
     Indication: HYPERTENSION
     Route: 048

REACTIONS (6)
  - Dizziness [Unknown]
  - Intentional overdose [Unknown]
  - Hypotension [Unknown]
  - Tremor [Unknown]
  - Hypoxia [Unknown]
  - Non-cardiogenic pulmonary oedema [Unknown]
